FAERS Safety Report 19592656 (Version 1)
Quarter: 2021Q3

REPORT INFORMATION
  Report Type: Spontaneous
  Country: GB (occurrence: GB)
  Receive Date: 20210722
  Receipt Date: 20210722
  Transmission Date: 20211014
  Serious: Yes (Hospitalization, Other)
  Sender: FDA-Public Use
  Company Number: GB-HIKMA PHARMACEUTICALS USA INC.-GB-H14001-21-55001

PATIENT
  Age: 12 Year
  Sex: Female
  Weight: 86 kg

DRUGS (1)
  1. ACICLOVIR [Suspect]
     Active Substance: ACYCLOVIR
     Indication: ILL-DEFINED DISORDER
     Dosage: UNKNOWN
     Route: 042
     Dates: start: 20210627, end: 20210627

REACTIONS (2)
  - Emotional distress [Unknown]
  - Administration site extravasation [Unknown]
